FAERS Safety Report 13341418 (Version 1)
Quarter: 2017Q1

REPORT INFORMATION
  Report Type: Spontaneous
  Country: FR (occurrence: FR)
  Receive Date: 20170316
  Receipt Date: 20170316
  Transmission Date: 20170428
  Serious: Yes (Other)
  Sender: FDA-Public Use
  Company Number: FR-GLAXOSMITHKLINE-FR2017GSK036690

PATIENT
  Sex: Female

DRUGS (2)
  1. NICOTINE. [Suspect]
     Active Substance: NICOTINE
     Indication: SMOKING CESSATION THERAPY
     Dosage: 12 LOZENGES DAILY
     Route: 048
  2. NICOTINE. [Suspect]
     Active Substance: NICOTINE
     Dosage: 12 LOZENGES DAILY
     Route: 048

REACTIONS (4)
  - Product supply issue [Unknown]
  - Drug dependence [Not Recovered/Not Resolved]
  - Incorrect drug administration duration [Unknown]
  - Therapy change [Unknown]
